FAERS Safety Report 9347512 (Version 1)
Quarter: 2013Q2

REPORT INFORMATION
  Report Type: Report from Study
  Country: US (occurrence: US)
  Receive Date: 20130614
  Receipt Date: 20130614
  Transmission Date: 20140414
  Serious: Yes (Hospitalization)
  Sender: FDA-Public Use
  Company Number: US-BIOGENIDEC-2013BI051280

PATIENT
  Age: 50 Year
  Sex: Female

DRUGS (13)
  1. TYSABRI [Suspect]
     Indication: MULTIPLE SCLEROSIS
     Route: 042
     Dates: start: 20081216
  2. SYNTHROID [Concomitant]
  3. NUVIGIL [Concomitant]
  4. ADDERALL XR [Concomitant]
  5. CYMBALTA [Concomitant]
  6. LYRICA [Concomitant]
  7. PREDNISONE DOSEPAK [Concomitant]
  8. VITAMIN B12 [Concomitant]
  9. VITAMIN D [Concomitant]
  10. EXELON [Concomitant]
     Route: 062
  11. VESICARE [Concomitant]
  12. ULTRAM [Concomitant]
  13. BACLOFEN [Concomitant]

REACTIONS (1)
  - Pulmonary embolism [Recovered/Resolved]
